FAERS Safety Report 6092607-3 (Version None)
Quarter: 2009Q1

REPORT INFORMATION
  Report Type: 
  Country: None (occurrence: None)
  Receive Date: 20090225
  Receipt Date: 20081204
  Transmission Date: 20090719
  Serious: No
  Sender: FDA-Public Use
  Company Number: US-BRISTOL-MYERS SQUIBB COMPANY-14430409

PATIENT
  Age: 68 Year
  Sex: Male
  Weight: 84 kg

DRUGS (1)
  1. KENALOG [Suspect]
     Indication: RASH

REACTIONS (8)
  - ACROCHORDON [None]
  - AGITATION [None]
  - DISTURBANCE IN ATTENTION [None]
  - INSOMNIA [None]
  - MUSCULAR WEAKNESS [None]
  - SKIN PAPILLOMA [None]
  - TINNITUS [None]
  - VISUAL ACUITY REDUCED [None]
